FAERS Safety Report 25086571 (Version 2)
Quarter: 2025Q1

REPORT INFORMATION
  Report Type: Spontaneous
  Country: JP (occurrence: JP)
  Receive Date: 20250317
  Receipt Date: 20250325
  Transmission Date: 20250408
  Serious: Yes (Other)
  Sender: GLAXOSMITHKLINE
  Company Number: JP-GSK-JP2025JPN029929

PATIENT

DRUGS (23)
  1. BENLYSTA [Suspect]
     Active Substance: BELIMUMAB
     Indication: Systemic lupus erythematosus
     Dosage: 200 MG, WE
     Route: 058
     Dates: start: 202202, end: 202204
  2. BENLYSTA [Suspect]
     Active Substance: BELIMUMAB
     Dosage: 200 MG, Q2W
     Route: 058
     Dates: start: 202206
  3. MIRTAZAPINE [Suspect]
     Active Substance: MIRTAZAPINE
  4. TACROLIMUS [Concomitant]
     Active Substance: TACROLIMUS
  5. TACROLIMUS [Concomitant]
     Active Substance: TACROLIMUS
     Dosage: 2 MG, QD
  6. LANSOPRAZOLE [Concomitant]
     Active Substance: LANSOPRAZOLE
  7. ALFACALCIDOL [Concomitant]
     Active Substance: ALFACALCIDOL
  8. PREDNISOLONE [Concomitant]
     Active Substance: PREDNISOLONE
     Dosage: 6 MG, QD
  9. PREDNISOLONE [Concomitant]
     Active Substance: PREDNISOLONE
     Dosage: 7.5 MG, QD
  10. PREDNISOLONE [Concomitant]
     Active Substance: PREDNISOLONE
     Dosage: 7 MG, QD
  11. PREDNISOLONE [Concomitant]
     Active Substance: PREDNISOLONE
     Dosage: 6 MG, QD
  12. PREDNISOLONE [Concomitant]
     Active Substance: PREDNISOLONE
     Dosage: 5 MG, QD
  13. PREDNISOLONE [Concomitant]
     Active Substance: PREDNISOLONE
     Dosage: 4 MG, QD
  14. PREDNISOLONE [Concomitant]
     Active Substance: PREDNISOLONE
     Dosage: 6 MG, QD
  15. BELSOMRA [Concomitant]
     Active Substance: SUVOREXANT
  16. TRAZODONE [Concomitant]
     Active Substance: TRAZODONE HYDROCHLORIDE
  17. ACETAMINOPHEN [Concomitant]
     Active Substance: ACETAMINOPHEN
  18. TRANSAMIN [Concomitant]
     Active Substance: TRANEXAMIC ACID
  19. Medicon [Concomitant]
  20. CARBOCYSTEINE [Concomitant]
     Active Substance: CARBOCYSTEINE
  21. SODIUM FERROUS CITRATE [Concomitant]
     Active Substance: SODIUM FERROUS CITRATE
  22. Cinal [Concomitant]
  23. MIYA-BM [Concomitant]
     Active Substance: CLOSTRIDIUM BUTYRICUM SPORES STRAIN M-55

REACTIONS (17)
  - Suicidal ideation [Recovering/Resolving]
  - Intentional self-injury [Unknown]
  - Depression [Recovering/Resolving]
  - Injection site macule [Unknown]
  - Personality change [Unknown]
  - Initial insomnia [Unknown]
  - Affect lability [Unknown]
  - Anxiety [Unknown]
  - Hyperventilation [Unknown]
  - Negativism [Unknown]
  - Tremor [Unknown]
  - Chest pain [Unknown]
  - Arthralgia [Unknown]
  - Balance disorder [Unknown]
  - Treatment noncompliance [Unknown]
  - Inappropriate schedule of product administration [Unknown]
  - Off label use [Unknown]
